FAERS Safety Report 10755010 (Version 1)
Quarter: 2015Q1

REPORT INFORMATION
  Report Type: Spontaneous
  Country: FR (occurrence: FR)
  Receive Date: 20150202
  Receipt Date: 20150202
  Transmission Date: 20150721
  Serious: Yes (Hospitalization)
  Sender: FDA-Public Use
  Company Number: FR-SA-2015SA009193

PATIENT
  Age: 52 Year
  Sex: Male

DRUGS (14)
  1. LOVENOX [Suspect]
     Active Substance: ENOXAPARIN SODIUM
     Route: 058
     Dates: end: 20141123
  2. GENTAMICIN. [Concomitant]
     Active Substance: GENTAMICIN
     Indication: ENDOCARDITIS
     Dates: start: 20141105, end: 20141109
  3. AUGMENTIN [Suspect]
     Active Substance: AMOXICILLIN\CLAVULANATE POTASSIUM
     Indication: UROSEPSIS
     Route: 048
     Dates: start: 20141112, end: 20141123
  4. AMIKACIN [Suspect]
     Active Substance: AMIKACIN
     Indication: UROSEPSIS
     Route: 042
     Dates: start: 20141111, end: 20141113
  5. ROCEPHINE [Concomitant]
     Active Substance: CEFTRIAXONE SODIUM
     Indication: PROSTATITIS
     Dates: start: 20141123
  6. FORLAX [Concomitant]
     Active Substance: POLYETHYLENE GLYCOL 4000
  7. CANCIDAS [Suspect]
     Active Substance: CASPOFUNGIN ACETATE
     Indication: FUNGAEMIA
     Route: 042
     Dates: start: 20141109, end: 20141123
  8. DAPTOMYCIN. [Concomitant]
     Active Substance: DAPTOMYCIN
     Indication: ENDOCARDITIS
     Dates: start: 20141103
  9. ORBENINE [Concomitant]
     Active Substance: CLOXACILLIN SODIUM
     Indication: ENDOCARDITIS
     Dates: start: 20141105, end: 20141109
  10. AZANTAC [Suspect]
     Active Substance: RANITIDINE HYDROCHLORIDE
     Route: 048
     Dates: end: 20141123
  11. ACUPAN [Concomitant]
     Active Substance: NEFOPAM HYDROCHLORIDE
  12. ACICLOVIR [Suspect]
     Active Substance: ACYCLOVIR
     Indication: ORAL HERPES
     Route: 048
     Dates: start: 20141111, end: 20141120
  13. ZOPICLONE [Suspect]
     Active Substance: ZOPICLONE
     Route: 048
     Dates: end: 20141123
  14. TAZOCILLINE [Concomitant]
     Active Substance: PIPERACILLIN SODIUM\TAZOBACTAM SODIUM
     Indication: UROSEPSIS
     Dates: start: 20141111, end: 20141113

REACTIONS (1)
  - Hepatitis [Recovered/Resolved]

NARRATIVE: CASE EVENT DATE: 20141115
